FAERS Safety Report 5996238-2 (Version None)
Quarter: 2008Q4

REPORT INFORMATION
  Report Type: 
  Country: None (occurrence: None)
  Receive Date: 20081212
  Receipt Date: 20081014
  Transmission Date: 20090506
  Serious: No
  Sender: FDA-Public Use
  Company Number: US-ABBOTT-08P-163-0481587-00

PATIENT
  Sex: Female
  Weight: 61.744 kg

DRUGS (14)
  1. HUMIRA [Suspect]
     Indication: RHEUMATOID ARTHRITIS
     Route: 058
     Dates: start: 20080930
  2. LOVOXYL [Concomitant]
     Indication: HORMONE REPLACEMENT THERAPY
     Route: 048
  3. HYDROCHLOROTHIAZIDE [Concomitant]
     Indication: HYPERTENSION
     Route: 048
  4. LOSARTAN POTASSIUM [Concomitant]
     Indication: HYPERTENSION
     Route: 048
  5. POTASSIUM CHLORIDE [Concomitant]
     Indication: ELECTROLYTE SUBSTITUTION THERAPY
     Route: 048
  6. LOVASTATIN [Concomitant]
     Indication: BLOOD CHOLESTEROL
     Route: 048
  7. PREMARIN VAG CREAM [Concomitant]
     Indication: HORMONE REPLACEMENT THERAPY
     Route: 061
  8. LUBRICANT EYE DROPS [Concomitant]
     Indication: DRY EYE
  9. GENTEAL EYE DROPS [Concomitant]
     Indication: DRY EYE
  10. M.V.I. [Concomitant]
     Indication: ROUTINE HEALTH MAINTENANCE
     Route: 048
  11. LEKOVIT CA [Concomitant]
     Indication: ROUTINE HEALTH MAINTENANCE
     Route: 048
  12. ZINC OXIDE [Concomitant]
     Indication: ROUTINE HEALTH MAINTENANCE
     Route: 048
  13. ASCORBIC ACID [Concomitant]
     Indication: ROUTINE HEALTH MAINTENANCE
     Route: 048
  14. VITAMIN E [Concomitant]
     Indication: ROUTINE HEALTH MAINTENANCE
     Route: 048

REACTIONS (5)
  - BURNING SENSATION [None]
  - DRY SKIN [None]
  - ERYTHEMA [None]
  - PRURITUS [None]
  - RASH [None]
